FAERS Safety Report 22237628 (Version 2)
Quarter: 2023Q2

REPORT INFORMATION
  Report Type: Other
  Country: CA (occurrence: CA)
  Receive Date: 20230421
  Receipt Date: 20230608
  Transmission Date: 20230721
  Serious: Yes (Other)
  Sender: FDA-Public Use
  Company Number: CA-CELLTRION INC.-2023CA008061

PATIENT

DRUGS (8)
  1. RITUXIMAB [Suspect]
     Active Substance: RITUXIMAB
     Indication: Plasmablastic lymphoma
     Dosage: 375 MG/M2, 1 EVERY 1 WEEK
     Route: 065
  2. CYCLOPHOSPHAMIDE [Suspect]
     Active Substance: CYCLOPHOSPHAMIDE
     Indication: Plasmablastic lymphoma
     Dosage: 750 MG/M2
     Route: 042
  3. ETOPOSIDE [Suspect]
     Active Substance: ETOPOSIDE
     Indication: Plasmablastic lymphoma
     Dosage: 100 MG/M2, 1 EVERY 1 DAY
     Route: 048
  4. ETOPOSIDE [Suspect]
     Active Substance: ETOPOSIDE
     Indication: Plasmablastic lymphoma
     Dosage: 50 MG/M2
     Route: 042
  5. METHOTREXATE [Suspect]
     Active Substance: METHOTREXATE
     Indication: Plasmablastic lymphoma
     Dosage: 15 MILLIGRAM
     Route: 037
  6. METHOTREXATE [Suspect]
     Active Substance: METHOTREXATE
     Indication: Plasmablastic lymphoma
     Dosage: 3000 MG/M2
     Route: 065
  7. PREDNISONE [Suspect]
     Active Substance: PREDNISONE
     Indication: Plasmablastic lymphoma
     Dosage: 1000 MILLIGRAM, 1 EVERY 1 DAY
     Route: 048
  8. VINCRISTINE SULFATE [Suspect]
     Active Substance: VINCRISTINE SULFATE
     Indication: Plasmablastic lymphoma
     Dosage: 1.4 MG/M2
     Route: 042

REACTIONS (3)
  - Infection [Recovered/Resolved]
  - Therapy non-responder [Recovered/Resolved]
  - Intentional product use issue [Unknown]
